FAERS Safety Report 12861249 (Version 1)
Quarter: 2016Q4

REPORT INFORMATION
  Report Type: Spontaneous
  Country: CA (occurrence: CA)
  Receive Date: 20161019
  Receipt Date: 20161019
  Transmission Date: 20170207
  Serious: Yes (Other)
  Sender: FDA-Public Use
  Company Number: CA-PAR PHARMACEUTICAL COMPANIES-2016SCPR015985

PATIENT
  Age: 16 Year
  Sex: Female

DRUGS (2)
  1. BUPIVACAINE. [Suspect]
     Active Substance: BUPIVACAINE
     Indication: JOINT ARTHROPLASTY
     Dosage: 0.25 %, UNKNOWN
     Route: 014
  2. ADRENALIN [Suspect]
     Active Substance: EPINEPHRINE
     Indication: JOINT ARTHROPLASTY
     Dosage: UNK, UNKNOWN
     Route: 014

REACTIONS (1)
  - Chondrolysis [Unknown]
